FAERS Safety Report 21090431 (Version 3)
Quarter: 2022Q3

REPORT INFORMATION
  Report Type: Spontaneous
  Country: US (occurrence: US)
  Receive Date: 20220715
  Receipt Date: 20220921
  Transmission Date: 20221026
  Serious: Yes (Hospitalization)
  Sender: FDA-Public Use
  Company Number: US-009507513-2207USA001679

PATIENT
  Age: 48 Year
  Sex: Female

DRUGS (3)
  1. INVANZ [Suspect]
     Active Substance: ERTAPENEM SODIUM
     Indication: Urinary tract infection
     Dosage: 1 GM/50ML FOR 10 DAYS
     Route: 042
     Dates: start: 20220522, end: 20220526
  2. INVANZ [Suspect]
     Active Substance: ERTAPENEM SODIUM
     Dosage: 1 GM/50ML FOR 10 DAYS
     Route: 042
     Dates: start: 20220528, end: 20220601
  3. STERILE DILUENT (WATER) [Suspect]
     Active Substance: WATER
     Dosage: UNK

REACTIONS (3)
  - Urinary tract infection [Unknown]
  - Therapeutic product effect decreased [Unknown]
  - Suspected counterfeit product [Unknown]

NARRATIVE: CASE EVENT DATE: 20220522
